FAERS Safety Report 8925530 (Version 1)
Quarter: 2012Q4

REPORT INFORMATION
  Report Type: 
  Country: US (occurrence: US)
  Receive Date: 20121126
  Receipt Date: 20121126
  Transmission Date: 20130627
  Serious: Yes (Other)
  Sender: FDA-Public Use
  Company Number: US-COVIDIEN/TYCO HEALTHCARE/MALLINCKRODT-T201204106

PATIENT
  Age: 57 Year
  Sex: Male

DRUGS (4)
  1. FENTANYL TRANSDERMAL SYSTEM [Suspect]
     Indication: PAIN
     Dosage: 50 ug/hr, q 72 hours
     Route: 062
     Dates: start: 201209
  2. TOPAMAX [Suspect]
     Indication: HEADACHE
     Dosage: 100 mg, qd
  3. HYDROCODONE [Concomitant]
     Indication: PAIN
     Dosage: 10/325 mg. q 4-6 hours
  4. FENTANYL [Concomitant]
     Dosage: 50 mcg/hr
     Route: 062

REACTIONS (4)
  - Drug interaction [Not Recovered/Not Resolved]
  - Somnolence [Not Recovered/Not Resolved]
  - Insomnia [Not Recovered/Not Resolved]
  - Euphoric mood [Not Recovered/Not Resolved]
